FAERS Safety Report 12957136 (Version 1)
Quarter: 2016Q4

REPORT INFORMATION
  Report Type: Spontaneous
  Country: TW (occurrence: TW)
  Receive Date: 20161118
  Receipt Date: 20161118
  Transmission Date: 20170207
  Serious: Yes (Hospitalization)
  Sender: FDA-Public Use
  Company Number: TW-US WORLDMEDS, LLC-USW201611-000752

PATIENT
  Age: 18 Year
  Sex: Male
  Weight: 90 kg

DRUGS (1)
  1. DANTROLENE [Suspect]
     Active Substance: DANTROLENE
     Indication: NEUROLEPTIC MALIGNANT SYNDROME
     Route: 042

REACTIONS (1)
  - Embolism venous [Recovering/Resolving]
